FAERS Safety Report 21443334 (Version 2)
Quarter: 2022Q4

REPORT INFORMATION
  Report Type: Spontaneous
  Country: IN (occurrence: IN)
  Receive Date: 20221012
  Receipt Date: 20221028
  Transmission Date: 20230113
  Serious: Yes (Other)
  Sender: FDA-Public Use
  Company Number: None

PATIENT
  Age: 37 Year
  Sex: Male

DRUGS (5)
  1. MYCOPHENOLATE MOFETIL [Suspect]
     Active Substance: MYCOPHENOLATE MOFETIL
     Indication: Immunosuppressant drug therapy
     Dosage: 1 GRAM, BID (2 GM IN 2 DIVIDED DOSES)
     Route: 065
     Dates: start: 202102
  2. TACROLIMUS [Suspect]
     Active Substance: TACROLIMUS
     Indication: Immunosuppressant drug therapy
     Dosage: 2.5 MILLIGRAM, BID (5 MG DAILY IN 2 DIVIDED DOSES)
     Route: 065
     Dates: start: 202102
  3. BASILIXIMAB [Suspect]
     Active Substance: BASILIXIMAB
     Indication: Immunosuppressant drug therapy
     Dosage: 20 MILLIGRAM
     Route: 065
     Dates: start: 20210202, end: 20210202
  4. BASILIXIMAB [Suspect]
     Active Substance: BASILIXIMAB
     Dosage: 20 MILLIGRAM
     Route: 065
     Dates: start: 20210129, end: 20210129
  5. METHYLPREDNISOLONE [Suspect]
     Active Substance: METHYLPREDNISOLONE
     Indication: Immunosuppressant drug therapy
     Dosage: 1 GRAM
     Route: 042
     Dates: start: 202102, end: 2021

REACTIONS (4)
  - Atypical mycobacterial infection [Unknown]
  - Skin lesion [Unknown]
  - Skin ulcer [Unknown]
  - Tuberculosis [Unknown]

NARRATIVE: CASE EVENT DATE: 20210801
